FAERS Safety Report 10331397 (Version 7)
Quarter: 2014Q4

REPORT INFORMATION
  Report Type: Spontaneous
  Country: US (occurrence: US)
  Receive Date: 20140722
  Receipt Date: 20141008
  Transmission Date: 20150528
  Serious: Yes (Death, Hospitalization)
  Sender: FDA-Public Use
  Company Number: US-PFIZER INC-2014199763

PATIENT
  Age: 75 Year
  Sex: Male
  Weight: 81.63 kg

DRUGS (15)
  1. SUTENT [Suspect]
     Active Substance: SUNITINIB MALATE
     Indication: RENAL CELL CARCINOMA
     Dosage: 50 MG, CYCLIC: DAILY (28DAYS ON, 14 DAYS OFF)
     Route: 048
     Dates: start: 20140701, end: 20140729
  2. INSULIN [Concomitant]
     Active Substance: INSULIN NOS
     Dosage: UNK
  3. DEXAMETHASONE. [Concomitant]
     Active Substance: DEXAMETHASONE
     Indication: BRAIN OEDEMA
     Dosage: 10 MG, BID
  4. SENNA [Concomitant]
     Active Substance: SENNA LEAF\SENNOSIDES\SENNOSIDES A AND B
     Dosage: UNK
  5. SIMVASTATIN. [Concomitant]
     Active Substance: SIMVASTATIN
     Dosage: UNK
  6. KEPPRA [Concomitant]
     Active Substance: LEVETIRACETAM
     Dosage: UNK
  7. LACTULOSE. [Concomitant]
     Active Substance: LACTULOSE
     Dosage: UNK
  8. NORCO [Concomitant]
     Active Substance: ACETAMINOPHEN\HYDROCODONE BITARTRATE
     Dosage: UNK
  9. BIOTENE [Concomitant]
     Active Substance: SODIUM MONOFLUOROPHOSPHATE
     Dosage: UNK
  10. SHORT ACTING INSULIN [Concomitant]
     Active Substance: INSULIN NOS
     Dosage: UNK
  11. VITAMIN D [Concomitant]
     Active Substance: CHOLECALCIFEROL
     Dosage: UNK
  12. HEPARIN [Concomitant]
     Active Substance: HEPARIN SODIUM
     Indication: DEEP VEIN THROMBOSIS
     Dosage: EVERY OTHER DAY
     Route: 058
  13. PEPCID [Concomitant]
     Active Substance: FAMOTIDINE
     Dosage: UNK
  14. LONG ACTING INSULIN [Concomitant]
     Active Substance: INSULIN NOS
     Dosage: UNK
  15. STOOL SOFTENER [Concomitant]
     Active Substance: DOCUSATE CALCIUM
     Dosage: UNK

REACTIONS (23)
  - Skin exfoliation [Unknown]
  - Stomatitis [Recovering/Resolving]
  - Lacrimation increased [Unknown]
  - Lip dry [Unknown]
  - Lip blister [Recovering/Resolving]
  - Quality of life decreased [Unknown]
  - Abdominal discomfort [Unknown]
  - Dysphagia [Recovering/Resolving]
  - Pruritus [Unknown]
  - Chapped lips [Unknown]
  - Renal cell carcinoma [Fatal]
  - Fatigue [Recovering/Resolving]
  - Glossodynia [Recovered/Resolved]
  - Skin haemorrhage [Unknown]
  - Weight decreased [Unknown]
  - Oral herpes [Recovering/Resolving]
  - Disease progression [Fatal]
  - Asthenia [Not Recovered/Not Resolved]
  - Constipation [Unknown]
  - Petechiae [Unknown]
  - Dry skin [Unknown]
  - Laceration [Unknown]
  - Fall [Recovered/Resolved]

NARRATIVE: CASE EVENT DATE: 201407
